FAERS Safety Report 4447785-6 (Version None)
Quarter: 2004Q3

REPORT INFORMATION
  Report Type: 
  Country: None (occurrence: None)
  Receive Date: 20040819
  Receipt Date: 20040526
  Transmission Date: 20050211
  Serious: Yes (Hospitalization)
  Sender: FDA-Public Use
  Company Number: 236300

PATIENT
  Age: 66 Year
  Sex: Female

DRUGS (2)
  1. NOVOLIN R [Suspect]
     Indication: DIABETES MELLITUS
     Dosage: 14 IU, BID, SUBCUTANEOUS
     Route: 058
  2. LANTUS [Concomitant]

REACTIONS (1)
  - BLOOD GLUCOSE INCREASED [None]
